FAERS Safety Report 5612413-0 (Version None)
Quarter: 2008Q1

REPORT INFORMATION
  Report Type: 
  Country: None (occurrence: None)
  Receive Date: 20080204
  Receipt Date: 20080124
  Transmission Date: 20080703
  Serious: Yes (Other)
  Sender: FDA-Public Use
  Company Number: US-MERCK-0711USA00686

PATIENT
  Age: 68 Year
  Sex: Female

DRUGS (1)
  1. FOSAMAX [Suspect]
     Indication: OSTEOPOROSIS
     Route: 048
     Dates: start: 19920101, end: 19960101

REACTIONS (13)
  - AMNESIA [None]
  - APICAL GRANULOMA [None]
  - BLOOD CHOLESTEROL INCREASED [None]
  - CHRONIC SINUSITIS [None]
  - DEMENTIA [None]
  - FALL [None]
  - FAT NECROSIS [None]
  - HYPERTENSION [None]
  - OSTEITIS [None]
  - OSTEOMYELITIS [None]
  - OSTEONECROSIS [None]
  - RHINITIS [None]
  - WRIST FRACTURE [None]
